FAERS Safety Report 19888028 (Version 2)
Quarter: 2021Q4

REPORT INFORMATION
  Report Type: Report from Study
  Country: IT (occurrence: IT)
  Receive Date: 20210927
  Receipt Date: 20211021
  Transmission Date: 20220303
  Serious: Yes (Other)
  Sender: FDA-Public Use
  Company Number: NVSC2021IT213811

PATIENT
  Age: 58 Year
  Sex: Female
  Weight: 80 kg

DRUGS (5)
  1. PIQRAY [Suspect]
     Active Substance: ALPELISIB
     Indication: Vaginal cancer recurrent
     Dosage: 300 MG
     Route: 065
     Dates: start: 20210812, end: 20210830
  2. PIQRAY [Suspect]
     Active Substance: ALPELISIB
     Dosage: 250 MG, QD
     Route: 065
     Dates: start: 20210912
  3. PIQRAY [Suspect]
     Active Substance: ALPELISIB
     Dosage: 300 MG
     Route: 065
     Dates: start: 20210920
  4. PIQRAY [Suspect]
     Active Substance: ALPELISIB
     Dosage: 250 MG
     Route: 065
  5. TACHIPIRINA [Concomitant]
     Active Substance: ACETAMINOPHEN
     Indication: Pain
     Dosage: 1000 MG, PRN (AS NEEDED IN CASE OF PAIN)
     Route: 065

REACTIONS (8)
  - Skin toxicity [Recovered/Resolved]
  - Asthenia [Not Recovered/Not Resolved]
  - Hyperglycaemia [Not Recovered/Not Resolved]
  - Erythema [Unknown]
  - Mouth ulceration [Unknown]
  - Rash [Unknown]
  - Erythema [Recovered/Resolved]
  - Drug ineffective [Unknown]

NARRATIVE: CASE EVENT DATE: 20210813
